FAERS Safety Report 18041408 (Version 2)
Quarter: 2020Q3

REPORT INFORMATION
  Report Type: Report from Study
  Country: None (occurrence: US)
  Receive Date: 20200719
  Receipt Date: 20200804
  Transmission Date: 20201103
  Serious: Yes (Hospitalization, Other)
  Sender: FDA-Public Use
  Company Number: US-ABBVIE-20K-163-3486048-00

PATIENT
  Age: 72 Year
  Sex: Female

DRUGS (2)
  1. RINVOQ [Suspect]
     Active Substance: UPADACITINIB
     Indication: RHEUMATOID ARTHRITIS
     Route: 048
     Dates: start: 201910
  2. LEVAQUIN [Concomitant]
     Active Substance: LEVOFLOXACIN
     Indication: KIDNEY INFECTION

REACTIONS (14)
  - Pain [Unknown]
  - Renal disorder [Unknown]
  - Kidney infection [Unknown]
  - Road traffic accident [Unknown]
  - Head injury [Unknown]
  - Back pain [Unknown]
  - Infection [Unknown]
  - Autoimmune disorder [Unknown]
  - Surgery [Unknown]
  - Urinary tract infection [Unknown]
  - Renal impairment [Unknown]
  - Kidney infection [Not Recovered/Not Resolved]
  - Bladder spasm [Not Recovered/Not Resolved]
  - Nephrolithiasis [Unknown]

NARRATIVE: CASE EVENT DATE: 202001
